FAERS Safety Report 10770506 (Version 1)
Quarter: 2015Q1

REPORT INFORMATION
  Report Type: Spontaneous
  Country: AR (occurrence: AR)
  Receive Date: 20150206
  Receipt Date: 20150206
  Transmission Date: 20150721
  Serious: Yes (Other)
  Sender: FDA-Public Use
  Company Number: AR-PFIZER INC-2015046308

PATIENT
  Age: 57 Year
  Sex: Male

DRUGS (1)
  1. SUTENT [Suspect]
     Active Substance: SUNITINIB MALATE
     Indication: METASTATIC RENAL CELL CARCINOMA
     Dosage: 50 MG, DAILY, CYCLIC (4/2 SCHEME)
     Dates: start: 20141110

REACTIONS (8)
  - Blood glucose increased [Unknown]
  - Limb injury [Recovering/Resolving]
  - Injury [Recovered/Resolved]
  - Blood pressure increased [Recovering/Resolving]
  - Arrhythmia [Recovered/Resolved]
  - Renal disorder [Unknown]
  - Vomiting [Recovered/Resolved]
  - Nausea [Recovered/Resolved]
